FAERS Safety Report 7343035-1 (Version None)
Quarter: 2011Q1

REPORT INFORMATION
  Report Type: 
  Country: None (occurrence: None)
  Receive Date: 20110310
  Receipt Date: 20110301
  Transmission Date: 20110831
  Serious: Yes (Hospitalization)
  Sender: FDA-Public Use
  Company Number: DE-JNJFOC-20110301137

PATIENT
  Sex: Male

DRUGS (1)
  1. TAVANIC [Suspect]
     Indication: PROSTATITIS
     Route: 065

REACTIONS (1)
  - EXTRAPYRAMIDAL DISORDER [None]
